FAERS Safety Report 13356172 (Version 1)
Quarter: 2017Q1

REPORT INFORMATION
  Report Type: Spontaneous
  Country: US (occurrence: US)
  Receive Date: 20170321
  Receipt Date: 20170321
  Transmission Date: 20170429
  Serious: No
  Sender: FDA-Public Use
  Company Number: US-WARNER CHILCOTT, LLC-1064474

PATIENT
  Sex: Male

DRUGS (9)
  1. OMEPRAZOLE. [Concomitant]
     Active Substance: OMEPRAZOLE
  2. HYDROCHLOROTHIAZIDE. [Concomitant]
     Active Substance: HYDROCHLOROTHIAZIDE
  3. DELZICOL [Suspect]
     Active Substance: MESALAMINE
     Route: 048
     Dates: start: 20160823
  4. ATORVASTATIN [Concomitant]
     Active Substance: ATORVASTATIN
  5. TELMISARTAN. [Concomitant]
     Active Substance: TELMISARTAN
  6. CITALOPRAM [Concomitant]
     Active Substance: CITALOPRAM HYDROBROMIDE
  7. ATENOLOL. [Concomitant]
     Active Substance: ATENOLOL
  8. INSULIN DETEMIR [Concomitant]
     Active Substance: INSULIN DETEMIR
  9. TOLTERODINE [Concomitant]
     Active Substance: TOLTERODINE

REACTIONS (1)
  - Pruritus [Not Recovered/Not Resolved]
